FAERS Safety Report 8903521 (Version 1)
Quarter: 2012Q4

REPORT INFORMATION
  Report Type: 
  Country: US (occurrence: US)
  Receive Date: 20121112
  Receipt Date: 20121112
  Transmission Date: 20130627
  Serious: No
  Sender: FDA-Public Use
  Company Number: US-MYLANLABS-2012S1012956

PATIENT
  Sex: Female

DRUGS (1)
  1. MAPROTILINE HYDROCHLORIDE [Suspect]
     Indication: DEPRESSION
     Route: 048
     Dates: start: 2004, end: 2004

REACTIONS (3)
  - Oesophageal pain [Recovered/Resolved]
  - Oral discomfort [Recovered/Resolved]
  - Dyspepsia [Recovered/Resolved]
